FAERS Safety Report 17498079 (Version 4)
Quarter: 2020Q2

REPORT INFORMATION
  Report Type: Report from Study
  Country: None (occurrence: US)
  Receive Date: 20200304
  Receipt Date: 20200521
  Transmission Date: 20200713
  Serious: Yes (Other)
  Sender: FDA-Public Use
  Company Number: US-ABBVIE-19K-163-3166729-00

PATIENT
  Age: 71 Year
  Sex: Male

DRUGS (9)
  1. IMBRUVICA [Suspect]
     Active Substance: IBRUTINIB
     Indication: CHRONIC LYMPHOCYTIC LEUKAEMIA
     Dosage: 420 MG, QD
     Route: 048
     Dates: start: 20191104
  2. SIMVASTATIN. [Concomitant]
     Active Substance: SIMVASTATIN
     Indication: PRODUCT USED FOR UNKNOWN INDICATION
  3. ZOCOR [Concomitant]
     Active Substance: SIMVASTATIN
     Indication: PRODUCT USED FOR UNKNOWN INDICATION
  4. LEVOTHYROXINE. [Concomitant]
     Active Substance: LEVOTHYROXINE
     Indication: PRODUCT USED FOR UNKNOWN INDICATION
  5. METOPROLOL. [Concomitant]
     Active Substance: METOPROLOL
     Indication: PRODUCT USED FOR UNKNOWN INDICATION
  6. IMBRUVICA [Suspect]
     Active Substance: IBRUTINIB
     Dosage: 420 MG, QD
     Route: 048
  7. ELIQUIS [Concomitant]
     Active Substance: APIXABAN
     Indication: PRODUCT USED FOR UNKNOWN INDICATION
  8. IMBRUVICA [Suspect]
     Active Substance: IBRUTINIB
     Dosage: 420 MG, QD
     Route: 048
  9. IMBRUVICA [Suspect]
     Active Substance: IBRUTINIB
     Route: 048

REACTIONS (22)
  - Immunosuppression [Unknown]
  - Diarrhoea [Recovered/Resolved]
  - Vomiting [Unknown]
  - Pain [Unknown]
  - Rash [Recovering/Resolving]
  - Influenza like illness [Not Recovered/Not Resolved]
  - Laboratory test abnormal [Recovering/Resolving]
  - Blood blister [Unknown]
  - Stomatitis [Not Recovered/Not Resolved]
  - White blood cell count decreased [Unknown]
  - Adverse drug reaction [Unknown]
  - Urinary tract discomfort [Recovering/Resolving]
  - Hair texture abnormal [Unknown]
  - Fatigue [Recovering/Resolving]
  - Surgery [Unknown]
  - Retching [Recovered/Resolved]
  - Erythema [Unknown]
  - Dysuria [Not Recovered/Not Resolved]
  - Hair colour changes [Unknown]
  - Nausea [Recovered/Resolved]
  - Adverse drug reaction [Recovering/Resolving]
  - Myalgia [Not Recovered/Not Resolved]

NARRATIVE: CASE EVENT DATE: 20191104
